FAERS Safety Report 7535198-X (Version None)
Quarter: 2011Q2

REPORT INFORMATION
  Report Type: 
  Country: None (occurrence: None)
  Receive Date: 20110609
  Receipt Date: 20090408
  Transmission Date: 20111010
  Serious: Yes (Death)
  Sender: FDA-Public Use
  Company Number: PHHY2008BR10160

PATIENT
  Age: 69 Year
  Sex: Female

DRUGS (2)
  1. DIOVAN HCT [Suspect]
     Dosage: 1 DF, UNK
     Route: 048
  2. DIOVAN HCT [Suspect]
     Dosage: 1 DF, UNK
     Route: 048

REACTIONS (1)
  - SUDDEN DEATH [None]
